FAERS Safety Report 24958236 (Version 2)
Quarter: 2025Q1

REPORT INFORMATION
  Report Type: Report from Study
  Country: US (occurrence: US)
  Receive Date: 20250212
  Receipt Date: 20250219
  Transmission Date: 20250409
  Serious: Yes (Hospitalization, Other)
  Sender: ABBVIE
  Company Number: US-ABBVIE-6063523

PATIENT
  Age: 60 Year
  Sex: Female
  Weight: 99.336 kg

DRUGS (2)
  1. HUMIRA [Suspect]
     Active Substance: ADALIMUMAB
     Indication: Rheumatoid arthritis
     Dosage: FORM STRENGTH: 40 MILLIGRAM
     Route: 058
     Dates: start: 20091207
  2. HUMIRA [Suspect]
     Active Substance: ADALIMUMAB
     Route: 058

REACTIONS (7)
  - Joint effusion [Unknown]
  - Myocardial infarction [Recovered/Resolved]
  - Arthralgia [Recovering/Resolving]
  - Gait inability [Recovering/Resolving]
  - Memory impairment [Not Recovered/Not Resolved]
  - Cerebrovascular accident [Recovered/Resolved]
  - Cardiac disorder [Unknown]

NARRATIVE: CASE EVENT DATE: 20210101
